FAERS Safety Report 5689200-0 (Version None)
Quarter: 2008Q1

REPORT INFORMATION
  Report Type: 
  Country: None (occurrence: None)
  Receive Date: 20080331
  Receipt Date: 20080321
  Transmission Date: 20080703
  Serious: Yes (Hospitalization, Other)
  Sender: FDA-Public Use
  Company Number: JP-BRISTOL-MYERS SQUIBB COMPANY-14130538

PATIENT
  Age: 73 Year
  Sex: Male

DRUGS (7)
  1. ENDOXAN [Suspect]
     Indication: INTERSTITIAL LUNG DISEASE
     Route: 048
     Dates: start: 20080125, end: 20080301
  2. ENDOXAN [Suspect]
     Indication: INTENTIONAL DRUG MISUSE
     Route: 048
     Dates: start: 20080125, end: 20080301
  3. PREDONINE [Concomitant]
     Indication: INTERSTITIAL LUNG DISEASE
  4. SPIRIVA [Concomitant]
     Indication: INTERSTITIAL LUNG DISEASE
  5. NU-LOTAN [Concomitant]
     Indication: HYPERTENSION
  6. CALBLOCK [Concomitant]
     Indication: HYPERTENSION
  7. PARIET [Concomitant]

REACTIONS (2)
  - COLITIS EROSIVE [None]
  - INTESTINAL POLYP [None]
